FAERS Safety Report 5708670-2 (Version None)
Quarter: 2008Q2

REPORT INFORMATION
  Report Type: 
  Country: None (occurrence: None)
  Receive Date: 20080417
  Receipt Date: 20080407
  Transmission Date: 20081010
  Serious: Yes (Hospitalization)
  Sender: FDA-Public Use
  Company Number: US-AMGEN-US271012

PATIENT
  Sex: Female

DRUGS (1)
  1. PANITUMUMAB [Suspect]
     Indication: NEOPLASM
     Route: 042
     Dates: start: 20080317

REACTIONS (3)
  - ASCITES [None]
  - HYPOMAGNESAEMIA [None]
  - HYPONATRAEMIA [None]
